FAERS Safety Report 6505856-4 (Version None)
Quarter: 2009Q4

REPORT INFORMATION
  Report Type: 
  Country: None (occurrence: None)
  Receive Date: 20091218
  Receipt Date: 20091214
  Transmission Date: 20100525
  Serious: Yes (Death)
  Sender: FDA-Public Use
  Company Number: RU-ROCHE-674742

PATIENT
  Sex: Female
  Weight: 50 kg

DRUGS (3)
  1. TRASTUZUMAB [Suspect]
     Dosage: LAST DOSE PRIOR TO SAE: 24 NOVEMBER 2009.    PERMANENTLY DISCONTINUED
     Route: 042
     Dates: start: 20091103
  2. PERTUZUMAB [Suspect]
     Dosage: LAST DOSE PRIOR TO SAE: 24 NOVEMBER 2009.  PERMANENTLY DISCONTINUED
     Route: 042
     Dates: start: 20091103
  3. TAXOTERE [Suspect]
     Dosage: LAST DOSE PRIOR TO SAE: 24 NOVEMBER 2009.  PERMANENTLY DISCONTINUED
     Route: 042
     Dates: start: 20091103

REACTIONS (1)
  - MYOCARDIAL INFARCTION [None]
